FAERS Safety Report 8778234 (Version 2)
Quarter: 2012Q4

REPORT INFORMATION
  Report Type: 
  Country: US (occurrence: US)
  Receive Date: 20120912
  Receipt Date: 20121002
  Transmission Date: 20130627
  Serious: Yes (Other)
  Sender: FDA-Public Use
  Company Number: US-CELGENEUS-163-21880-12090572

PATIENT
  Age: 65 Year
  Sex: Male
  Weight: 107.14 kg

DRUGS (12)
  1. REVLIMID [Suspect]
     Indication: MULTIPLE MYELOMA
     Dosage: 15 Milligram
     Route: 048
     Dates: start: 200811
  2. REVLIMID [Suspect]
     Dosage: 10 Milligram
     Route: 048
     Dates: start: 200903, end: 20090709
  3. REVLIMID [Suspect]
     Dosage: 10 Milligram
     Route: 048
     Dates: start: 20120827
  4. LOPID [Concomitant]
     Indication: DRUG USE FOR UNKNOWN INDICATION
     Dosage: 1200 Milligram
     Route: 065
  5. MULTIVITAMINS [Concomitant]
     Indication: DRUG USE FOR UNKNOWN INDICATION
     Route: 065
  6. OMEPRAZOLE [Concomitant]
     Indication: DRUG USE FOR UNKNOWN INDICATION
     Dosage: 20 Milligram
     Route: 065
  7. VITAMIN B [Concomitant]
     Indication: DRUG USE FOR UNKNOWN INDICATION
     Dosage: 200 Milligram
     Route: 065
  8. VITAMIN D [Concomitant]
     Indication: DRUG USE FOR UNKNOWN INDICATION
     Route: 065
  9. ZESTRIL [Concomitant]
     Indication: DRUG USE FOR UNKNOWN INDICATION
     Dosage: 30 Milligram
     Route: 065
  10. ZOVANT [Concomitant]
     Indication: DRUG USE FOR UNKNOWN INDICATION
     Dosage: 400 Milligram
     Route: 065
  11. BACTRIM DS [Concomitant]
     Indication: PROPHYLAXIS
     Route: 065
     Dates: start: 20120827
  12. DECADRON [Concomitant]
     Indication: DRUG USE FOR UNKNOWN INDICATION
     Dosage: 20 Milligram
     Route: 065
     Dates: start: 20120827

REACTIONS (1)
  - Neutropenia [Recovered/Resolved]
